FAERS Safety Report 19141066 (Version 1)
Quarter: 2021Q2

REPORT INFORMATION
  Report Type: Spontaneous
  Country: US (occurrence: US)
  Receive Date: 20210415
  Receipt Date: 20210415
  Transmission Date: 20210717
  Serious: Yes (Life-Threatening, Hospitalization)
  Sender: FDA-Public Use
  Company Number: US-GW PHARMA-202104USGW01559

PATIENT

DRUGS (1)
  1. EPIDIOLEX [Suspect]
     Active Substance: CANNABIDIOL
     Indication: LENNOX-GASTAUT SYNDROME
     Dosage: 22.47 MG/KG/DAY, 200 MILLIGRAM, BID
     Route: 048
     Dates: start: 20200422

REACTIONS (5)
  - Dyspnoea [Recovered/Resolved]
  - Dyspepsia [Unknown]
  - Prescribed overdose [Unknown]
  - Cyanosis [Unknown]
  - Gastrooesophageal reflux disease [Unknown]
